FAERS Safety Report 9405585 (Version 3)
Quarter: 2013Q4

REPORT INFORMATION
  Report Type: Spontaneous
  Country: US (occurrence: US)
  Receive Date: 20130717
  Receipt Date: 20131226
  Transmission Date: 20140711
  Serious: No
  Sender: FDA-Public Use
  Company Number: US-PFIZER INC-2013209130

PATIENT
  Age: 55 Year
  Sex: Female
  Weight: 70.3 kg

DRUGS (4)
  1. EFFEXOR XR [Suspect]
     Indication: DEPRESSION
     Dosage: 75 MG, 2X/DAY
     Route: 048
  2. EFFEXOR XR [Suspect]
     Dosage: 75 MG, ALTERNATE DAY
     Route: 048
     Dates: end: 201305
  3. VENLAFAXINE HYDROCHLORIDE [Suspect]
     Indication: DEPRESSION
     Dosage: SPLITTING 75MG TABLET IN TWO HALVES, ONE HALF IN THE MORNING AND ONE HALF AT NIGHT, 2X/DAY
     Dates: start: 20131214
  4. ALPRAZOLAM [Concomitant]
     Indication: PANIC ATTACK
     Dosage: 1 MG, 2X/DAY
     Route: 048

REACTIONS (6)
  - Wrong technique in drug usage process [Unknown]
  - Crying [Recovering/Resolving]
  - Emotional disorder [Recovering/Resolving]
  - Malaise [Unknown]
  - Urinary tract infection [Unknown]
  - Feeling abnormal [Unknown]
